FAERS Safety Report 6683944-X (Version None)
Quarter: 2010Q2

REPORT INFORMATION
  Report Type: 
  Country: None (occurrence: None)
  Receive Date: 20100416
  Receipt Date: 20100406
  Transmission Date: 20101027
  Serious: Yes (Hospitalization, Other)
  Sender: FDA-Public Use
  Company Number: US-PFIZER INC-2010043360

PATIENT

DRUGS (3)
  1. PROCARDIA [Suspect]
     Dosage: 60 MG, DAILY
     Route: 048
  2. BENICAR [Suspect]
     Dosage: 40 MG, DAILY
     Route: 048
  3. NEBIVOLOL [Suspect]
     Dosage: 40 MG, DAILY
     Route: 048

REACTIONS (2)
  - BLOOD PRESSURE ABNORMAL [None]
  - PNEUMONIA [None]
